FAERS Safety Report 18404330 (Version 1)
Quarter: 2020Q4

REPORT INFORMATION
  Report Type: Spontaneous
  Country: US (occurrence: US)
  Receive Date: 20201020
  Receipt Date: 20201020
  Transmission Date: 20210114
  Serious: Yes (Hospitalization)
  Sender: FDA-Public Use
  Company Number: None

PATIENT
  Age: 75 Year
  Sex: Female

DRUGS (22)
  1. ATORVASTATIN [Concomitant]
     Active Substance: ATORVASTATIN
  2. FLONASE ALGY [Concomitant]
  3. VITAMIN B12 [Concomitant]
     Active Substance: CYANOCOBALAMIN
  4. FLOVENT HFA [Concomitant]
     Active Substance: FLUTICASONE PROPIONATE
  5. MULTIPLE VIT [Concomitant]
  6. TYLENOL [Concomitant]
     Active Substance: ACETAMINOPHEN
  7. ESBRIET [Suspect]
     Active Substance: PIRFENIDONE
     Indication: IDIOPATHIC PULMONARY FIBROSIS
     Route: 048
     Dates: start: 20190822
  8. CETIRIZINE [Concomitant]
     Active Substance: CETIRIZINE HYDROCHLORIDE
  9. VITAMIN D3 [Concomitant]
     Active Substance: CHOLECALCIFEROL
  10. GABAPENTIN. [Concomitant]
     Active Substance: GABAPENTIN
  11. ALBUTEROL. [Concomitant]
     Active Substance: ALBUTEROL
  12. BASAGLAR [Concomitant]
     Active Substance: INSULIN GLARGINE
  13. PROAIR HFA [Concomitant]
     Active Substance: ALBUTEROL SULFATE
  14. VOLTAREN [Concomitant]
     Active Substance: DICLOFENAC SODIUM
  15. TUSSIN MAX [Concomitant]
  16. NOVOLOG [Concomitant]
     Active Substance: INSULIN ASPART
  17. OMEPRAZOLE. [Concomitant]
     Active Substance: OMEPRAZOLE
  18. PROBIOTIC [Concomitant]
     Active Substance: PROBIOTICS NOS
  19. IMIPRAMINE [Concomitant]
     Active Substance: IMIPRAMINE
  20. JANUVIA [Concomitant]
     Active Substance: SITAGLIPTIN PHOSPHATE
  21. LOSARTAN/HCT [Concomitant]
     Active Substance: HYDROCHLOROTHIAZIDE\LOSARTAN POTASSIUM
  22. PREDNISONE. [Concomitant]
     Active Substance: PREDNISONE

REACTIONS (3)
  - Dyspnoea [None]
  - Oxygen saturation abnormal [None]
  - Product dose omission issue [None]

NARRATIVE: CASE EVENT DATE: 20200923
